FAERS Safety Report 20149999 (Version 2)
Quarter: 2021Q4

REPORT INFORMATION
  Report Type: Report from Study
  Country: US (occurrence: US)
  Receive Date: 20211206
  Receipt Date: 20211214
  Transmission Date: 20220303
  Serious: No
  Sender: FDA-Public Use
  Company Number: US-NOVARTISTESTPH-NVSC2021US275892

PATIENT
  Sex: Female

DRUGS (3)
  1. PIQRAY [Suspect]
     Active Substance: ALPELISIB
     Indication: Breast cancer
     Dosage: 300 MG, QOD
     Route: 048
     Dates: start: 202106
  2. PIQRAY [Suspect]
     Active Substance: ALPELISIB
     Dosage: 250 MG, QOD
     Route: 048
  3. PIQRAY [Suspect]
     Active Substance: ALPELISIB
     Dosage: 200 MG, QOD
     Route: 048

REACTIONS (7)
  - Pain of skin [Unknown]
  - Constipation [Unknown]
  - Flatulence [Unknown]
  - Hyperglycaemia [Recovering/Resolving]
  - Blood creatinine increased [Unknown]
  - Weight decreased [Unknown]
  - Diarrhoea [Unknown]
